FAERS Safety Report 8512810-X (Version None)
Quarter: 2012Q3

REPORT INFORMATION
  Report Type: 
  Country: None (occurrence: None)
  Receive Date: 20120716
  Receipt Date: 20120713
  Transmission Date: 20120928
  Serious: Yes (Other)
  Sender: FDA-Public Use
  Company Number: US-PFIZER INC-2012140446

PATIENT
  Sex: Female
  Weight: 112.93 kg

DRUGS (3)
  1. ZOLOFT [Suspect]
     Indication: DEPRESSION
     Dosage: 100 MG, 2X/DAY
     Route: 048
     Dates: start: 20090101
  2. CALCIUM [Concomitant]
     Dosage: UNK
  3. HYDROCODONE [Concomitant]
     Dosage: UNK

REACTIONS (3)
  - LUNG NEOPLASM MALIGNANT [None]
  - HERNIA [None]
  - PAIN [None]
